FAERS Safety Report 18951949 (Version 1)
Quarter: 2021Q1

REPORT INFORMATION
  Report Type: Report from Study
  Country: CA (occurrence: CA)
  Receive Date: 20210301
  Receipt Date: 20210301
  Transmission Date: 20210420
  Serious: Yes (Death)
  Sender: FDA-Public Use
  Company Number: CA-JNJFOC-20200123201

PATIENT
  Age: 66 Year
  Sex: Female
  Weight: 58.06 kg

DRUGS (3)
  1. REMICADE [Suspect]
     Active Substance: INFLIXIMAB
     Route: 042
     Dates: start: 20181205, end: 20191227
  2. O2                                 /00150301/ [Concomitant]
     Active Substance: OXYGEN
     Indication: CHRONIC OBSTRUCTIVE PULMONARY DISEASE
     Route: 065
  3. REMICADE [Suspect]
     Active Substance: INFLIXIMAB
     Indication: CROHN^S DISEASE
     Route: 042

REACTIONS (1)
  - Respiratory syncytial virus infection [Fatal]
